FAERS Safety Report 10266516 (Version 5)
Quarter: 2016Q2

REPORT INFORMATION
  Report Type: Report from Study
  Country: BR (occurrence: BR)
  Receive Date: 20140629
  Receipt Date: 20160509
  Transmission Date: 20160815
  Serious: Yes (Other)
  Sender: FDA-Public Use
  Company Number: BR-ABBVIE-14P-020-1252497-00

PATIENT
  Sex: Female
  Weight: 65 kg

DRUGS (16)
  1. REUQUINOL [Concomitant]
     Active Substance: HYDROXYCHLOROQUINE SULFATE
     Indication: ARTHRITIS
     Dosage: HALF TABLET DAILY
     Route: 048
     Dates: start: 2002
  2. CALCIUM + D3 [Concomitant]
     Active Substance: CALCIUM\CHOLECALCIFEROL
     Indication: BONE DISORDER
     Route: 048
     Dates: start: 2002
  3. ENALAPRIL [Concomitant]
     Active Substance: ENALAPRIL
     Indication: HYPERTENSION
     Route: 048
     Dates: start: 2010
  4. HUMIRA [Suspect]
     Active Substance: ADALIMUMAB
     Route: 058
  5. ENALAPRIL [Concomitant]
     Active Substance: ENALAPRIL
     Indication: BLOOD PRESSURE ABNORMAL
  6. SIGMATRIOL [Concomitant]
     Active Substance: CALCITRIOL
     Indication: BONE DISORDER
     Route: 048
     Dates: start: 2010
  7. CALCIUM [Concomitant]
     Active Substance: CALCIUM
     Indication: BONE DISORDER
     Route: 048
     Dates: start: 2002
  8. ARAVA [Concomitant]
     Active Substance: LEFLUNOMIDE
     Indication: ARTHRITIS
     Route: 048
     Dates: start: 2004
  9. METHOTREXATE [Suspect]
     Active Substance: METHOTREXATE
     Indication: ARTHRITIS
     Route: 048
     Dates: start: 2002
  10. OSTEOFORM [Concomitant]
     Indication: OSTEOPENIA
     Route: 048
  11. HUMIRA [Suspect]
     Active Substance: ADALIMUMAB
     Route: 058
  12. HUMIRA [Suspect]
     Active Substance: ADALIMUMAB
     Route: 058
  13. HUMIRA [Suspect]
     Active Substance: ADALIMUMAB
     Indication: RHEUMATOID ARTHRITIS
     Route: 058
     Dates: start: 20080101
  14. CALCIUM + D3 [Concomitant]
     Active Substance: CALCIUM\CHOLECALCIFEROL
     Route: 048
     Dates: start: 2014
  15. DICLOFENAC SODIUM. [Concomitant]
     Active Substance: DICLOFENAC SODIUM
     Indication: PAIN
     Dosage: SPORADICALLY
     Route: 048
  16. SIMVASTATIN. [Concomitant]
     Active Substance: SIMVASTATIN
     Indication: BLOOD CHOLESTEROL ABNORMAL
     Route: 048
     Dates: start: 2012

REACTIONS (16)
  - Device loosening [Unknown]
  - Femur fracture [Recovered/Resolved]
  - Femur fracture [Not Recovered/Not Resolved]
  - Sinusitis [Recovered/Resolved]
  - Immunodeficiency [Recovered/Resolved]
  - Internal fixation of fracture [Unknown]
  - Femur fracture [Recovering/Resolving]
  - Lower limb fracture [Recovered/Resolved]
  - Device breakage [Recovered/Resolved]
  - Arthropathy [Recovered/Resolved]
  - Bone pain [Recovered/Resolved]
  - Blood cholesterol abnormal [Unknown]
  - Stress [Recovered/Resolved]
  - Osteoarthritis [Recovered/Resolved]
  - Bone graft [Not Recovered/Not Resolved]
  - Procedural complication [Unknown]

NARRATIVE: CASE EVENT DATE: 2008
